FAERS Safety Report 16265747 (Version 2)
Quarter: 2019Q2

REPORT INFORMATION
  Report Type: Report from Study
  Country: US (occurrence: US)
  Receive Date: 20190502
  Receipt Date: 20190617
  Transmission Date: 20190711
  Serious: Yes (Hospitalization)
  Sender: FDA-Public Use
  Company Number: US-B.I. PHARMACEUTICALS,INC./RIDGEFIELD-2018-BI-028961

PATIENT
  Age: 74 Year
  Sex: Male

DRUGS (21)
  1. HYDROCODONE/ACETAMINOPHEN [Concomitant]
     Active Substance: ACETAMINOPHEN\HYDROCODONE
     Indication: PRODUCT USED FOR UNKNOWN INDICATION
     Dosage: 5/325MG TAKE 1 EVERY 4HOURS AS NEEDED
     Route: 048
     Dates: start: 20170627
  2. SAW PALMETTO [Concomitant]
     Active Substance: HERBALS\SAW PALMETTO
     Indication: PRODUCT USED FOR UNKNOWN INDICATION
     Dosage: REQUESTED FOR 31MAY2006 RECORDED
     Route: 048
     Dates: start: 20060531
  3. OFEV [Suspect]
     Active Substance: NINTEDANIB
     Route: 048
     Dates: start: 20190222
  4. OFEV [Suspect]
     Active Substance: NINTEDANIB
     Route: 048
  5. ATORVASTATIN CALCIUM. [Concomitant]
     Active Substance: ATORVASTATIN CALCIUM
     Indication: PRODUCT USED FOR UNKNOWN INDICATION
     Dosage: LAST RX 23JAN2018/ REQUESTED FOR 23JAN2018 ORDERED
     Route: 048
     Dates: start: 20050912
  6. OMEPRAZOLE. [Concomitant]
     Active Substance: OMEPRAZOLE
     Indication: PRODUCT USED FOR UNKNOWN INDICATION
     Dosage: DELAYED RELEASE CAPSULE/ EVAL 09JUL2018/REQUESTED FOR 14JUL2017/LAST RX 14JUL2017 ORDERED
     Route: 048
     Dates: start: 20170714
  7. SILDENAFIL CITRATE. [Concomitant]
     Active Substance: SILDENAFIL CITRATE
     Indication: PRODUCT USED FOR UNKNOWN INDICATION
     Dosage: DOSE: 1/2 TO 1 PILL/LAST RX 23JAN2018 ORDERED
     Route: 048
     Dates: start: 20180123
  8. ADVAIR HFA [Concomitant]
     Active Substance: FLUTICASONE PROPIONATE\SALMETEROL XINAFOATE
     Indication: PRODUCT USED FOR UNKNOWN INDICATION
     Dosage: DOSE: 250/50MCG?FORM: INHALATION AEROSOL POWDER BREATH ACTIVATED/LAST RX: 27MAR2017 (ORDERED)
     Route: 055
     Dates: start: 20170327
  9. ALBUTEROL SULFATE. [Concomitant]
     Active Substance: ALBUTEROL SULFATE
     Indication: PRODUCT USED FOR UNKNOWN INDICATION
     Dosage: 2.5MG/3ML (0.083%)/1 UNIT MIXED W/ 1 UNIT DOSE OF IPRAT BROMIDE/EVAL 07DEC2017
     Route: 055
     Dates: start: 20161117
  10. FISH OIL [Concomitant]
     Active Substance: FISH OIL
     Indication: PRODUCT USED FOR UNKNOWN INDICATION
     Route: 048
     Dates: start: 20170620
  11. FLUTICASONE PROPIONATE. [Concomitant]
     Active Substance: FLUTICASONE PROPIONATE
     Indication: PRODUCT USED FOR UNKNOWN INDICATION
     Dosage: NASAL SUSPENSION/ 2 SPRAYS IN EACH NOSTRIL?LAST RX 17NOV2016 REQUESTED FOR 17NOV2016 ORDERED
     Route: 065
     Dates: start: 20161117
  12. MECLIZINE HCL [Concomitant]
     Active Substance: MECLIZINE HYDROCHLORIDE
     Indication: PRODUCT USED FOR UNKNOWN INDICATION
     Dosage: 1 TAB 3X/DAY AS NEEDED/ EVALUATE 18JAN2019/ REQUESTED 23JAN2018/ LAST RX 23JAN2018 ORDERED
     Route: 048
     Dates: start: 20120706
  13. HYDROMET [Concomitant]
     Active Substance: HOMATROPINE METHYLBROMIDE\HYDROCODONE BITARTRATE
     Indication: PRODUCT USED FOR UNKNOWN INDICATION
     Dosage: LAST RX 23JAN2018 ORDERED
     Route: 048
     Dates: start: 20161227
  14. ONDANSETRON HCL [Concomitant]
     Active Substance: ONDANSETRON HYDROCHLORIDE
     Indication: NAUSEA
     Dosage: EVAL 05JUL2017/REQUESTED FOR 20JUN2017/ LAST RX 20JUN2017 ORDERED
     Route: 048
     Dates: start: 20170620
  15. ASPIRIN. [Concomitant]
     Active Substance: ASPIRIN
     Indication: PRODUCT USED FOR UNKNOWN INDICATION
     Dosage: REQUESTED FOR 12SEP2005 RECORDED
     Route: 048
     Dates: start: 20050912
  16. BIOTIN [Concomitant]
     Active Substance: BIOTIN
     Indication: PRODUCT USED FOR UNKNOWN INDICATION
     Route: 048
     Dates: start: 20160304
  17. VENTOLIN HFA [Concomitant]
     Active Substance: ALBUTEROL SULFATE
     Indication: PRODUCT USED FOR UNKNOWN INDICATION
     Dosage: 108 (90BASE)MCG/ACT/ INHALATION AEROSOL SOLUTION//LAST RX + REQUESTED FOR 30NOV2017 ORDERED
     Route: 055
     Dates: start: 20171130
  18. OFEV [Suspect]
     Active Substance: NINTEDANIB
     Indication: IDIOPATHIC PULMONARY FIBROSIS
     Route: 048
     Dates: start: 20180208, end: 20190125
  19. DUKES MOUTHWASH [Concomitant]
     Indication: PRODUCT USED FOR UNKNOWN INDICATION
     Dosage: 1 TEASPOON/240ML? LAST RX 06JUL2017 ORDERED
     Route: 050
     Dates: start: 20170706
  20. IPRATROPIUM BROMIDE. [Concomitant]
     Active Substance: IPRATROPIUM BROMIDE
     Indication: PRODUCT USED FOR UNKNOWN INDICATION
     Dosage: 0.03%/NASAL SOLUTION/ USE 2 SPRAYS IN EACH NOSTRIL?LAST RX 17NOV2016 REQUESTED 17NOV2016 ORDERED
     Route: 065
     Dates: start: 20161117
  21. NYSTATIN. [Concomitant]
     Active Substance: NYSTATIN
     Indication: PRODUCT USED FOR UNKNOWN INDICATION
     Dosage: 100000 UNIT/ML MOUTH/ THROAT SUSPENSION
     Route: 065
     Dates: start: 20170724

REACTIONS (7)
  - Diarrhoea [Recovered/Resolved]
  - Secretion discharge [Not Recovered/Not Resolved]
  - Lung disorder [Not Recovered/Not Resolved]
  - Small cell lung cancer [Recovered/Resolved]
  - Lung carcinoma cell type unspecified stage I [Not Recovered/Not Resolved]
  - Diarrhoea [Not Recovered/Not Resolved]
  - Weight decreased [Not Recovered/Not Resolved]

NARRATIVE: CASE EVENT DATE: 20180522
